FAERS Safety Report 9408294 (Version 2)
Quarter: 2013Q3

REPORT INFORMATION
  Report Type: Spontaneous
  Country: JP (occurrence: JP)
  Receive Date: 20130718
  Receipt Date: 20130816
  Transmission Date: 20140515
  Serious: Yes (Hospitalization)
  Sender: FDA-Public Use
  Company Number: PHHY2013JP074504

PATIENT
  Age: 1 Month
  Sex: 0

DRUGS (3)
  1. TEGRETOL [Suspect]
     Indication: EPILEPSY
     Dosage: UNK UKN, UNK
  2. CLOBAZAM [Suspect]
     Indication: EPILEPSY
     Dosage: 10 MG, UNK
     Route: 063
  3. LAMOTRIGINE [Suspect]
     Indication: EPILEPSY
     Dosage: 200 MG, UNK
     Route: 063

REACTIONS (5)
  - Hepatic function abnormal [Recovering/Resolving]
  - Feeding disorder neonatal [Recovering/Resolving]
  - Weight gain poor [Recovering/Resolving]
  - Somnolence [Recovering/Resolving]
  - Exposure during breast feeding [Recovered/Resolved]
